FAERS Safety Report 11821929 (Version 1)
Quarter: 2015Q4

REPORT INFORMATION
  Report Type: Spontaneous
  Country: US (occurrence: US)
  Receive Date: 20151210
  Receipt Date: 20151210
  Transmission Date: 20160305
  Serious: No
  Sender: FDA-Public Use
  Company Number: US-JNJFOC-20150810189

PATIENT
  Sex: Female

DRUGS (8)
  1. IMBRUVICA [Suspect]
     Active Substance: IBRUTINIB
     Indication: CHRONIC LYMPHOCYTIC LEUKAEMIA
     Route: 048
     Dates: start: 20150523
  2. IMBRUVICA [Suspect]
     Active Substance: IBRUTINIB
     Indication: CHRONIC LYMPHOCYTIC LEUKAEMIA
     Route: 048
     Dates: start: 20150523
  3. PROTONIX [Concomitant]
     Active Substance: PANTOPRAZOLE SODIUM
  4. ATORVASTATIN [Concomitant]
     Active Substance: ATORVASTATIN
  5. TEMAZEPAM. [Concomitant]
     Active Substance: TEMAZEPAM
  6. LISINOPRIL. [Concomitant]
     Active Substance: LISINOPRIL
  7. REQUIP [Concomitant]
     Active Substance: ROPINIROLE HYDROCHLORIDE
  8. PLAVIX [Concomitant]
     Active Substance: CLOPIDOGREL BISULFATE

REACTIONS (6)
  - Cheilitis [Unknown]
  - Stomatitis [Unknown]
  - Pain in extremity [Unknown]
  - Bone pain [Unknown]
  - Incorrect dose administered [Not Recovered/Not Resolved]
  - Dysphonia [Unknown]

NARRATIVE: CASE EVENT DATE: 2015
